FAERS Safety Report 23342463 (Version 2)
Quarter: 2024Q1

REPORT INFORMATION
  Report Type: Spontaneous
  Country: AR (occurrence: AR)
  Receive Date: 20231227
  Receipt Date: 20240111
  Transmission Date: 20240410
  Serious: Yes (Hospitalization, Other)
  Sender: FDA-Public Use
  Company Number: AR-009507513-2312ARG008975

PATIENT
  Age: 15 Year
  Sex: Male
  Weight: 60 kg

DRUGS (6)
  1. NOXAFIL [Suspect]
     Active Substance: POSACONAZOLE
     Indication: Pulmonary mucormycosis
     Dosage: UNK
  2. POSACONAZOLE [Suspect]
     Active Substance: POSACONAZOLE
     Indication: Pulmonary mucormycosis
     Dosage: 300 MILLIGRAM, 24 HOURS BY 1 DAY||ONCE
     Route: 048
     Dates: start: 20231107
  3. POSACONAZOLE [Suspect]
     Active Substance: POSACONAZOLE
     Dosage: 300 MG; 3 TABLET PER DAY; 300 MG A DAY||QD
     Route: 048
     Dates: start: 20231108
  4. AMPHOTERICIN B [Suspect]
     Active Substance: AMPHOTERICIN B
     Indication: Pulmonary mucormycosis
     Dosage: 10 (UNITS NOT PROVIDED) X KILOGRAM
     Dates: start: 20231103
  5. AMPHOTERICIN B [Suspect]
     Active Substance: AMPHOTERICIN B
     Dosage: 10 (UNITS NOT PROVIDED) X KILOGRAM
     Dates: start: 20231107
  6. MEROPENEM [Suspect]
     Active Substance: MEROPENEM
     Indication: Pulmonary mucormycosis
     Dosage: UNK
     Dates: start: 20231103

REACTIONS (9)
  - Intensive care [Not Recovered/Not Resolved]
  - Pulmonary necrosis [Unknown]
  - Thrombocytopenia [Unknown]
  - Splenomegaly [Unknown]
  - Product use issue [Unknown]
  - Product use issue [Unknown]
  - Inability to afford medication [Unknown]
  - Prescription drug used without a prescription [Unknown]
  - Inappropriate schedule of product administration [Unknown]

NARRATIVE: CASE EVENT DATE: 20230101
